FAERS Safety Report 10051332 (Version 2)
Quarter: 2014Q2

REPORT INFORMATION
  Report Type: Spontaneous
  Country: US (occurrence: US)
  Receive Date: 20140401
  Receipt Date: 20140409
  Transmission Date: 20141212
  Serious: Yes (Other)
  Sender: FDA-Public Use
  Company Number: US-PFIZER INC-2014087931

PATIENT
  Age: 52 Year
  Sex: Male

DRUGS (1)
  1. GEODON [Suspect]
     Dosage: 40 MG, 2X/DAY
     Dates: start: 20140325

REACTIONS (9)
  - Neuroleptic malignant syndrome [Unknown]
  - Trismus [Unknown]
  - Heart rate abnormal [Unknown]
  - Blood pressure abnormal [Unknown]
  - Depression [Unknown]
  - Overdose [Unknown]
  - Dyskinesia [Unknown]
  - Insomnia [Unknown]
  - Depression [Unknown]
